FAERS Safety Report 18212598 (Version 1)
Quarter: 2020Q3

REPORT INFORMATION
  Report Type: Spontaneous
  Country: US (occurrence: US)
  Receive Date: 20200831
  Receipt Date: 20200831
  Transmission Date: 20201103
  Serious: No
  Sender: FDA-Public Use
  Company Number: US-BAYER-2020-179482

PATIENT

DRUGS (2)
  1. VITRAKVI [Suspect]
     Active Substance: LAROTRECTINIB
     Dosage: DOSE REDUCTION
  2. VITRAKVI [Suspect]
     Active Substance: LAROTRECTINIB
     Dosage: 100 MG, BID
     Route: 048
     Dates: start: 202005

REACTIONS (1)
  - Hepatic enzyme increased [None]
